FAERS Safety Report 10447472 (Version 3)
Quarter: 2015Q2

REPORT INFORMATION
  Report Type: Spontaneous
  Country: US (occurrence: US)
  Receive Date: 20140911
  Receipt Date: 20150413
  Transmission Date: 20150821
  Serious: Yes (Hospitalization, Other)
  Sender: FDA-Public Use
  Company Number: US-JNJFOC-20140901843

PATIENT
  Age: 76 Year
  Sex: Female

DRUGS (10)
  1. VITAMIN D3 [Concomitant]
     Active Substance: CHOLECALCIFEROL
     Route: 048
  2. ONDANSETRON [Concomitant]
     Active Substance: ONDANSETRON
     Route: 065
  3. LISINOPRIL. [Concomitant]
     Active Substance: LISINOPRIL
     Route: 065
  4. LEVAQUIN [Suspect]
     Active Substance: LEVOFLOXACIN
     Indication: URINARY TRACT INFECTION
     Route: 065
     Dates: start: 20140716
  5. SUTENT [Suspect]
     Active Substance: SUNITINIB MALATE
     Indication: GASTROINTESTINAL STROMAL TUMOUR
     Route: 048
     Dates: start: 20140709
  6. SUTENT [Suspect]
     Active Substance: SUNITINIB MALATE
     Indication: GASTROINTESTINAL STROMAL TUMOUR
     Route: 048
     Dates: start: 201412
  7. ASPIRIN. [Concomitant]
     Active Substance: ASPIRIN
     Route: 065
  8. ALDACTONE [Concomitant]
     Active Substance: SPIRONOLACTONE
     Route: 048
  9. KEPPRA [Concomitant]
     Active Substance: LEVETIRACETAM
     Route: 065
  10. DEMECLOCYCLINE [Concomitant]
     Active Substance: DEMECLOCYCLINE
     Route: 065

REACTIONS (16)
  - Hypotension [Recovering/Resolving]
  - Blood glucose fluctuation [Recovering/Resolving]
  - Blood creatinine increased [Not Recovered/Not Resolved]
  - Hyponatraemia [Unknown]
  - Nausea [Recovering/Resolving]
  - Myalgia [Recovering/Resolving]
  - Hypertension [Recovering/Resolving]
  - Urinary tract infection [Recovering/Resolving]
  - Oral mucosal discolouration [Recovering/Resolving]
  - Peripheral swelling [Recovering/Resolving]
  - Back pain [Recovering/Resolving]
  - Fatigue [Unknown]
  - Oral pain [Recovering/Resolving]
  - Gastrooesophageal reflux disease [Unknown]
  - Sensation of foreign body [Unknown]
  - Dysgeusia [Not Recovered/Not Resolved]

NARRATIVE: CASE EVENT DATE: 20140716
